FAERS Safety Report 9374376 (Version 1)
Quarter: 2013Q2

REPORT INFORMATION
  Report Type: Report from Study
  Country: BE (occurrence: BE)
  Receive Date: 20130628
  Receipt Date: 20130628
  Transmission Date: 20140414
  Serious: Yes (Death)
  Sender: FDA-Public Use
  Company Number: PHHY2013BE066590

PATIENT
  Age: 76 Year
  Sex: Female

DRUGS (2)
  1. ACLASTA [Suspect]
     Dosage: UNK UKN, UNK
     Route: 042
     Dates: start: 201104
  2. ACLASTA [Suspect]
     Dosage: UNK UKN, UNK
     Route: 042
     Dates: start: 2012

REACTIONS (3)
  - Death [Fatal]
  - Concomitant disease progression [Fatal]
  - Aphagia [Unknown]
